FAERS Safety Report 8417362-0 (Version None)
Quarter: 2012Q2

REPORT INFORMATION
  Report Type: 
  Country: None (occurrence: None)
  Receive Date: 20120606
  Receipt Date: 20120529
  Transmission Date: 20120825
  Serious: Yes (Death)
  Sender: FDA-Public Use
  Company Number: US-MPIJNJ-2012-03815

PATIENT
  Sex: Female

DRUGS (3)
  1. ISOTRETINOIN [Suspect]
     Indication: BRAIN NEOPLASM
  2. VALPROIC ACID [Suspect]
     Indication: BRAIN NEOPLASM
  3. VELCADE [Suspect]
     Indication: BRAIN NEOPLASM

REACTIONS (1)
  - DEATH [None]
